FAERS Safety Report 9084687 (Version 1)
Quarter: 2013Q1

REPORT INFORMATION
  Report Type: Report from Study
  Country: US (occurrence: US)
  Receive Date: 20130131
  Receipt Date: 20130131
  Transmission Date: 20140127
  Serious: No
  Sender: FDA-Public Use
  Company Number: US-ABBOTT-12P-163-0993128-00

PATIENT
  Age: 57 Year
  Sex: Female

DRUGS (10)
  1. HUMIRA [Suspect]
     Indication: RHEUMATOID ARTHRITIS
     Dates: start: 20120808
  2. TURMERIC [Suspect]
     Indication: ARTHRALGIA
  3. TRAVATAN [Concomitant]
     Indication: GLAUCOMA
     Dates: end: 20121008
  4. ALPHAGAN P 1% [Concomitant]
     Indication: GLAUCOMA
     Dosage: TWICE A DAY
     Dates: start: 20121008
  5. METHOTREXATE [Concomitant]
     Indication: RHEUMATOID ARTHRITIS
     Dosage: WEEKLY
  6. FOLIC ACID [Concomitant]
     Indication: PRODUCT USED FOR UNKNOWN INDICATION
  7. LOVAZA [Concomitant]
     Indication: ARTHROPATHY
  8. ATORVASTATIN [Concomitant]
     Indication: BLOOD CHOLESTEROL INCREASED
  9. NAPROXEN [Concomitant]
     Indication: ARTHRALGIA
  10. GLUCOSAMINE/CHONDROITIN MSM [Concomitant]
     Indication: PRODUCT USED FOR UNKNOWN INDICATION
     Dosage: 1500MG/1700 MG MSM

REACTIONS (3)
  - Laceration [Recovering/Resolving]
  - Impaired healing [Recovering/Resolving]
  - Arthralgia [Unknown]
